FAERS Safety Report 8335046-4 (Version None)
Quarter: 2012Q2

REPORT INFORMATION
  Report Type: 
  Country: None (occurrence: None)
  Receive Date: 20120503
  Receipt Date: 20120423
  Transmission Date: 20120825
  Serious: Yes (Life-Threatening, Hospitalization)
  Sender: FDA-Public Use
  Company Number: ES-CELGENEUS-144-21880-12042709

PATIENT
  Sex: Male
  Weight: 100 kg

DRUGS (10)
  1. REVLIMID [Suspect]
     Indication: MULTIPLE MYELOMA
     Route: 048
     Dates: start: 20110616, end: 20110705
  2. DEXAMETHASONE [Suspect]
     Route: 065
     Dates: start: 20120110, end: 20120117
  3. CARFILZOMIB [Suspect]
     Indication: MULTIPLE MYELOMA
     Route: 065
  4. CARFILZOMIB [Suspect]
     Route: 065
     Dates: start: 20120110, end: 20120111
  5. ASPIRIN [Concomitant]
     Indication: ANTICOAGULANT THERAPY
     Dosage: 250 MILLIGRAM
     Route: 048
     Dates: start: 20110616
  6. DEXAMETHASONE [Suspect]
     Route: 065
     Dates: start: 20120124, end: 20120131
  7. DEXAMETHASONE [Suspect]
     Route: 065
     Dates: start: 20120208, end: 20120229
  8. REVLIMID [Suspect]
     Route: 048
     Dates: start: 20120308
  9. DEXAMETHASONE [Suspect]
     Indication: MULTIPLE MYELOMA
     Route: 065
  10. CARFILZOMIB [Suspect]
     Route: 065
     Dates: start: 20120208

REACTIONS (1)
  - HYPOCALCAEMIA [None]
